FAERS Safety Report 18354529 (Version 1)
Quarter: 2020Q4

REPORT INFORMATION
  Report Type: Spontaneous
  Country: US (occurrence: US)
  Receive Date: 20201005
  Receipt Date: 20201005
  Transmission Date: 20210114
  Serious: Yes (Hospitalization)
  Sender: FDA-Public Use
  Company Number: None

PATIENT
  Age: 69 Year
  Sex: Male

DRUGS (1)
  1. EVEROLIMUS 5 MG PAR PHARMACEUTICAL [Suspect]
     Active Substance: EVEROLIMUS
     Route: 048
     Dates: start: 20200812

REACTIONS (2)
  - Nephrolithiasis [None]
  - Pyrexia [None]

NARRATIVE: CASE EVENT DATE: 20200905
